FAERS Safety Report 16306795 (Version 3)
Quarter: 2022Q4

REPORT INFORMATION
  Report Type: Spontaneous
  Country: US (occurrence: None)
  Receive Date: 20190513
  Receipt Date: 20221209
  Transmission Date: 20230113
  Serious: Yes (Death, Hospitalization, Other)
  Sender: FDA-Public Use
  Company Number: 2019SE66059

PATIENT
  Age: 18280 Day
  Sex: Female
  Weight: 59 kg

DRUGS (69)
  1. NEXIUM [Suspect]
     Active Substance: ESOMEPRAZOLE MAGNESIUM
     Indication: Gastrooesophageal reflux disease
     Route: 048
     Dates: start: 201108, end: 201411
  2. NEXIUM [Suspect]
     Active Substance: ESOMEPRAZOLE MAGNESIUM
     Indication: Gastrooesophageal reflux disease
     Route: 048
     Dates: start: 2011, end: 2014
  3. NEXIUM 24HR [Suspect]
     Active Substance: ESOMEPRAZOLE MAGNESIUM
     Indication: Gastrooesophageal reflux disease
     Route: 048
     Dates: start: 201108, end: 201411
  4. NEXIUM 24HR [Suspect]
     Active Substance: ESOMEPRAZOLE MAGNESIUM
     Indication: Gastrooesophageal reflux disease
     Route: 048
  5. NEXIUM 24HR [Suspect]
     Active Substance: ESOMEPRAZOLE MAGNESIUM
     Indication: Gastrooesophageal reflux disease
     Dosage: ROCOMMENDED DOSAGE AS NEEDED
     Route: 048
     Dates: start: 2014
  6. PRILOSEC [Suspect]
     Active Substance: OMEPRAZOLE MAGNESIUM
     Indication: Gastrooesophageal reflux disease
     Route: 048
     Dates: start: 201108, end: 201411
  7. PRILOSEC [Suspect]
     Active Substance: OMEPRAZOLE MAGNESIUM
     Indication: Gastrooesophageal reflux disease
     Dosage: GENERIC
     Route: 065
     Dates: start: 2011, end: 2017
  8. PRILOSEC [Suspect]
     Active Substance: OMEPRAZOLE MAGNESIUM
     Indication: Gastrooesophageal reflux disease
     Dosage: OMEPRAZOLE GENERIC
     Route: 048
  9. PRILOSEC [Suspect]
     Active Substance: OMEPRAZOLE MAGNESIUM
     Indication: Gastrooesophageal reflux disease
     Dosage: OMEPRAZOLE GENERIC
     Route: 048
     Dates: start: 20130506
  10. PRILOSEC [Suspect]
     Active Substance: OMEPRAZOLE MAGNESIUM
     Indication: Gastrooesophageal reflux disease
     Route: 048
     Dates: start: 201108, end: 201411
  11. PRILOSEC OTC [Suspect]
     Active Substance: OMEPRAZOLE MAGNESIUM
     Indication: Gastrooesophageal reflux disease
     Route: 048
  12. PRILOSEC OTC [Suspect]
     Active Substance: OMEPRAZOLE MAGNESIUM
     Indication: Gastrooesophageal reflux disease
     Route: 048
     Dates: start: 2011, end: 2014
  13. PREVACID [Suspect]
     Active Substance: LANSOPRAZOLE
     Indication: Gastrooesophageal reflux disease
     Route: 065
     Dates: start: 201108, end: 201411
  14. PREVACID [Suspect]
     Active Substance: LANSOPRAZOLE
     Indication: Gastrooesophageal reflux disease
     Dosage: GENERIC
     Route: 065
  15. PREVACID [Suspect]
     Active Substance: LANSOPRAZOLE
     Indication: Gastrooesophageal reflux disease
     Dosage: GENERIC
     Route: 065
     Dates: start: 2014
  16. PROTONIX [Suspect]
     Active Substance: PANTOPRAZOLE SODIUM
     Indication: Gastrooesophageal reflux disease
     Route: 065
     Dates: start: 201108, end: 201411
  17. PROTONIX [Suspect]
     Active Substance: PANTOPRAZOLE SODIUM
     Indication: Gastrooesophageal reflux disease
     Route: 065
  18. PROTONIX [Suspect]
     Active Substance: PANTOPRAZOLE SODIUM
     Indication: Gastrooesophageal reflux disease
     Dosage: GENERIC
     Route: 065
  19. PROTONIX [Suspect]
     Active Substance: PANTOPRAZOLE SODIUM
     Indication: Gastrooesophageal reflux disease
     Dosage: GENERIC
     Route: 065
  20. PROTONIX [Suspect]
     Active Substance: PANTOPRAZOLE SODIUM
     Indication: Gastrooesophageal reflux disease
     Route: 048
     Dates: start: 20130703
  21. PROTONIX [Suspect]
     Active Substance: PANTOPRAZOLE SODIUM
     Indication: Gastrooesophageal reflux disease
     Route: 065
     Dates: start: 2009, end: 2017
  22. PROTONIX [Suspect]
     Active Substance: PANTOPRAZOLE SODIUM
     Indication: Gastrooesophageal reflux disease
     Route: 065
     Dates: start: 201108, end: 201411
  23. PROTONIX [Suspect]
     Active Substance: PANTOPRAZOLE SODIUM
     Indication: Gastrooesophageal reflux disease
     Dosage: PANTOPRAZOLE GENERIC
     Route: 042
  24. PROTONIX [Suspect]
     Active Substance: PANTOPRAZOLE SODIUM
     Indication: Gastrooesophageal reflux disease
     Route: 065
     Dates: start: 2009, end: 2017
  25. PROTONIX [Suspect]
     Active Substance: PANTOPRAZOLE SODIUM
     Indication: Gastrooesophageal reflux disease
     Route: 065
     Dates: start: 2009, end: 2017
  26. ACETAMINOPHEN\OXYCODONE HYDROCHLORIDE [Concomitant]
     Active Substance: ACETAMINOPHEN\OXYCODONE HYDROCHLORIDE
     Indication: Analgesic therapy
     Dates: start: 20130719, end: 20150414
  27. FUROSEMIDE [Concomitant]
     Active Substance: FUROSEMIDE
     Indication: Fluid retention
     Dates: start: 20080320, end: 20150414
  28. AZITHROMYCIN [Concomitant]
     Active Substance: AZITHROMYCIN
     Indication: Antibiotic therapy
     Dates: start: 20110929, end: 20130106
  29. AZITHROMYCIN [Concomitant]
     Active Substance: AZITHROMYCIN
     Indication: Antibiotic therapy
     Dates: start: 20101209, end: 20130105
  30. DICLOFENAC [Concomitant]
     Active Substance: DICLOFENAC
     Indication: Analgesic intervention supportive therapy
     Dates: start: 20170810
  31. ATORVASTATIN [Concomitant]
     Active Substance: ATORVASTATIN
     Indication: Blood cholesterol increased
     Dates: start: 20110811
  32. CIPROFLOXACIN [Concomitant]
     Active Substance: CIPROFLOXACIN
     Indication: Antibiotic therapy
     Dates: start: 20101204, end: 20141015
  33. BENAZEPRIL [Concomitant]
     Active Substance: BENAZEPRIL HYDROCHLORIDE
     Indication: Hypertension
     Dates: start: 20130604, end: 20150206
  34. ALPRAZOLAM [Concomitant]
     Active Substance: ALPRAZOLAM
     Indication: Anxiety
     Dates: start: 20101028, end: 20150206
  35. ZANTAC [Concomitant]
     Active Substance: RANITIDINE HYDROCHLORIDE
  36. AXID [Concomitant]
     Active Substance: NIZATIDINE
  37. RANITIDINE [Concomitant]
     Active Substance: RANITIDINE
     Dates: start: 20121026, end: 20140731
  38. LEVEMIR [Concomitant]
     Active Substance: INSULIN DETEMIR
  39. LATANOPROST [Concomitant]
     Active Substance: LATANOPROST
  40. NIFEDIPINE [Concomitant]
     Active Substance: NIFEDIPINE
  41. SEVELAMER [Concomitant]
     Active Substance: SEVELAMER
  42. NOVOLOG [Concomitant]
     Active Substance: INSULIN ASPART
  43. DIPHENHYDRAMINE [Concomitant]
     Active Substance: DIPHENHYDRAMINE
  44. MICONAZOLE [Concomitant]
     Active Substance: MICONAZOLE
  45. FLUCONAZOLE [Concomitant]
     Active Substance: FLUCONAZOLE
  46. CLONIDINE [Concomitant]
     Active Substance: CLONIDINE
  47. AMPICILLIN [Concomitant]
     Active Substance: AMPICILLIN
  48. CRESTOR [Concomitant]
     Active Substance: ROSUVASTATIN CALCIUM
  49. GABAPENTIN [Concomitant]
     Active Substance: GABAPENTIN
  50. KIONEX [Concomitant]
     Active Substance: SODIUM POLYSTYRENE SULFONATE
  51. CARVEDILOL [Concomitant]
     Active Substance: CARVEDILOL
  52. FENOFIBRATE [Concomitant]
     Active Substance: FENOFIBRATE
  53. LORAZEPAM [Concomitant]
     Active Substance: LORAZEPAM
  54. METRONIDAZOLE [Concomitant]
     Active Substance: METRONIDAZOLE
  55. FARXIGA [Concomitant]
     Active Substance: DAPAGLIFLOZIN PROPANEDIOL
  56. HUMALOG [Concomitant]
     Active Substance: INSULIN LISPRO
  57. PREMARIN [Concomitant]
     Active Substance: ESTROGENS, CONJUGATED
  58. BUDESONIDE [Concomitant]
     Active Substance: BUDESONIDE
  59. DULERA [Concomitant]
     Active Substance: FORMOTEROL FUMARATE DIHYDRATE\MOMETASONE FUROATE
  60. PROAIR HFA [Concomitant]
     Active Substance: ALBUTEROL SULFATE
  61. VITAMIN D [Concomitant]
     Active Substance: VITAMIN D NOS
  62. LIPITOR [Concomitant]
     Active Substance: ATORVASTATIN CALCIUM
  63. CELEBREX [Concomitant]
     Active Substance: CELECOXIB
  64. CARAFATE [Concomitant]
     Active Substance: SUCRALFATE
  65. SAVELLA [Concomitant]
     Active Substance: MILNACIPRAN HYDROCHLORIDE
  66. EXFORGE [Concomitant]
     Active Substance: AMLODIPINE BESYLATE\VALSARTAN
  67. LOVAZA [Concomitant]
     Active Substance: OMEGA-3-ACID ETHYL ESTERS
  68. NABUMETONE [Concomitant]
     Active Substance: NABUMETONE
  69. VIMOVO [Concomitant]
     Active Substance: ESOMEPRAZOLE MAGNESIUM\NAPROXEN

REACTIONS (9)
  - Death [Fatal]
  - Chronic kidney disease [Unknown]
  - End stage renal disease [Unknown]
  - Acute kidney injury [Unknown]
  - Hyperparathyroidism secondary [Unknown]
  - Nephrogenic anaemia [Unknown]
  - Renal failure [Unknown]
  - Hypervolaemia [Unknown]
  - Hypernatraemia [Unknown]

NARRATIVE: CASE EVENT DATE: 20140430
